FAERS Safety Report 6815559-4 (Version None)
Quarter: 2010Q3

REPORT INFORMATION
  Report Type: 
  Country: None (occurrence: None)
  Receive Date: 20100702
  Receipt Date: 20100617
  Transmission Date: 20110219
  Serious: Yes (Other)
  Sender: FDA-Public Use
  Company Number: US-BAYER-201025728NA

PATIENT
  Sex: Female

DRUGS (1)
  1. MIRENA [Suspect]
     Indication: CONTRACEPTION
     Dosage: FREQUENCY CONTINUOUS
     Route: 015
     Dates: start: 20081001

REACTIONS (3)
  - ABDOMINAL PAIN UPPER [None]
  - GASTRIC CANCER [None]
  - MENSTRUATION IRREGULAR [None]
